FAERS Safety Report 6227553-5 (Version None)
Quarter: 2009Q2

REPORT INFORMATION
  Report Type: 
  Country: None (occurrence: None)
  Receive Date: 20090612
  Receipt Date: 20090608
  Transmission Date: 20091009
  Serious: Yes (Hospitalization)
  Sender: FDA-Public Use
  Company Number: FR-ASTRAZENECA-2009CG01170

PATIENT
  Age: 3 Year
  Sex: Male

DRUGS (9)
  1. NEXIUM [Suspect]
     Route: 048
     Dates: start: 20090430
  2. TAZOCILLINE [Suspect]
     Dosage: 1.2 G + 150 MG
     Route: 042
     Dates: start: 20090415, end: 20090509
  3. PARACETAMOL [Suspect]
     Dates: start: 20090430
  4. DELURSAN [Concomitant]
  5. VOGALENE [Concomitant]
  6. VITAMIN K [Concomitant]
  7. UVESTEROL [Concomitant]
  8. NUBAIN [Concomitant]
  9. DAKTARIN [Concomitant]

REACTIONS (2)
  - CHOLESTASIS [None]
  - NEUTROPENIA [None]
